FAERS Safety Report 4414608-0 (Version None)
Quarter: 2004Q3

REPORT INFORMATION
  Report Type: 
  Country: None (occurrence: None)
  Receive Date: 20040729
  Receipt Date: 20040716
  Transmission Date: 20050211
  Serious: Yes (Other)
  Sender: FDA-Public Use
  Company Number: 2004SE04099

PATIENT
  Age: 20 Year
  Sex: Male

DRUGS (1)
  1. SEROQUEL [Suspect]
     Indication: SCHIZOPHRENIA
     Dosage: 600 MG DAILY PO
     Route: 048
     Dates: start: 20040617

REACTIONS (2)
  - ALANINE AMINOTRANSFERASE INCREASED [None]
  - THROMBOCYTOPENIA [None]
